FAERS Safety Report 10189280 (Version 2)
Quarter: 2014Q2

REPORT INFORMATION
  Report Type: Spontaneous
  Country: TH (occurrence: TH)
  Receive Date: 20140522
  Receipt Date: 20140522
  Transmission Date: 20141212
  Serious: Yes (Other)
  Sender: FDA-Public Use
  Company Number: TH-BAXTER-2014BAX022286

PATIENT
  Sex: Male

DRUGS (1)
  1. DIANEALPD-2 WITH 1.5 PERCENT DEXTROSE [Suspect]
     Indication: PERITONEAL DIALYSIS
     Route: 033
     Dates: start: 20140405

REACTIONS (2)
  - Hypersensitivity [Unknown]
  - Noninfectious peritonitis [Recovering/Resolving]
